FAERS Safety Report 6712827-1 (Version None)
Quarter: 2010Q2

REPORT INFORMATION
  Report Type: 
  Country: None (occurrence: None)
  Receive Date: 20100506
  Receipt Date: 20090806
  Transmission Date: 20101027
  Serious: No
  Sender: FDA-Public Use
  Company Number: A0800947A

PATIENT
  Age: 3 Year
  Sex: Female

DRUGS (2)
  1. AUGMENTIN '125' [Suspect]
     Dosage: .75TSP TWICE PER DAY
     Route: 048
     Dates: start: 20090801, end: 20090803
  2. NO CONCURRENT MEDICATION [Concomitant]

REACTIONS (2)
  - DYSPNOEA [None]
  - URTICARIA [None]
